FAERS Safety Report 13778404 (Version 3)
Quarter: 2017Q3

REPORT INFORMATION
  Report Type: Report from Study
  Country: AU (occurrence: AU)
  Receive Date: 20170721
  Receipt Date: 20170811
  Transmission Date: 20171127
  Serious: Yes (Death, Hospitalization, Other)
  Sender: FDA-Public Use
  Company Number: AU-AMGEN-AUSSL2017111334

PATIENT
  Age: 71 Year
  Sex: Male
  Weight: 73 kg

DRUGS (8)
  1. BACTRIM DS [Suspect]
     Active Substance: SULFAMETHOXAZOLE\TRIMETHOPRIM
     Indication: PNEUMOCYSTIS JIROVECII PNEUMONIA
     Dosage: UNK
     Route: 065
     Dates: end: 20170713
  2. VENTOLIN [Concomitant]
     Active Substance: ALBUTEROL SULFATE
     Dosage: UNK
  3. METRONIDAZOLE. [Concomitant]
     Active Substance: METRONIDAZOLE
     Indication: ORAL INFECTION
     Dosage: UNK
     Dates: start: 20170703
  4. KYPROLIS [Suspect]
     Active Substance: CARFILZOMIB
     Dosage: 56 MG/M2 (109 MG), UNK
     Route: 042
     Dates: start: 20170704, end: 20170705
  5. CLINDAMYCIN. [Concomitant]
     Active Substance: CLINDAMYCIN
     Indication: ORAL INFECTION
     Dosage: UNK
     Dates: start: 20170703
  6. KYPROLIS [Suspect]
     Active Substance: CARFILZOMIB
     Indication: PLASMA CELL MYELOMA
     Dosage: 20 MG/M2 (39 MG), UNK
     Route: 042
     Dates: start: 20170627, end: 20170628
  7. DEXAMETHASONE. [Concomitant]
     Active Substance: DEXAMETHASONE
     Dosage: UNK
  8. BACTRIM DS [Suspect]
     Active Substance: SULFAMETHOXAZOLE\TRIMETHOPRIM
     Indication: SEPSIS

REACTIONS (6)
  - Respiratory failure [Fatal]
  - Acute kidney injury [Fatal]
  - Urinary tract infection enterococcal [Unknown]
  - Sepsis [Unknown]
  - Plasma cell myeloma [Recovering/Resolving]
  - Pneumocystis jirovecii pneumonia [Fatal]

NARRATIVE: CASE EVENT DATE: 2017
